FAERS Safety Report 10791040 (Version 3)
Quarter: 2015Q2

REPORT INFORMATION
  Report Type: Spontaneous
  Country: US (occurrence: US)
  Receive Date: 20150212
  Receipt Date: 20150430
  Transmission Date: 20150821
  Serious: Yes (Other)
  Sender: FDA-Public Use
  Company Number: US-GLAXOSMITHKLINE-US2015GSK019287

PATIENT
  Age: 48 Year
  Sex: Male
  Weight: 79.82 kg

DRUGS (1)
  1. ARZERRA [Suspect]
     Active Substance: OFATUMUMAB
     Indication: PRODUCT USED FOR UNKNOWN INDICATION
     Dosage: 2000 MG, Q4WEEKS
     Route: 042
     Dates: start: 20110926, end: 20111130

REACTIONS (4)
  - Chronic lymphocytic leukaemia [Unknown]
  - Device related infection [Recovered/Resolved]
  - Sepsis [Recovered/Resolved]
  - Platelet count decreased [Unknown]

NARRATIVE: CASE EVENT DATE: 20111026
